FAERS Safety Report 17766164 (Version 1)
Quarter: 2020Q2

REPORT INFORMATION
  Report Type: Other
  Country: CA (occurrence: CA)
  Receive Date: 20200511
  Receipt Date: 20200511
  Transmission Date: 20200714
  Serious: Yes (Life-Threatening, Hospitalization, Other)
  Sender: FDA-Public Use
  Company Number: CA-PFIZER INC-2020184489

PATIENT
  Sex: Male

DRUGS (6)
  1. EPINEPHRINE. [Suspect]
     Active Substance: EPINEPHRINE
     Dosage: 0.05 UG
     Route: 065
  2. SILDENAFIL CITRATE. [Suspect]
     Active Substance: SILDENAFIL CITRATE
     Dosage: 2 MG/KG, 3X/DAY
     Route: 065
  3. HYDROCORTISONE. [Suspect]
     Active Substance: HYDROCORTISONE
     Dosage: 1 MG/KG, 3X/DAY
     Route: 065
  4. ALPROSTADIL. [Suspect]
     Active Substance: ALPROSTADIL
     Dosage: 0.005 UG
     Route: 042
  5. SILDENAFIL CITRATE. [Suspect]
     Active Substance: SILDENAFIL CITRATE
     Indication: PULMONARY HYPERTENSION
     Dosage: 0.25 MG/KG, 3X/DAY
     Route: 065
  6. DEXAMETHASONE. [Suspect]
     Active Substance: DEXAMETHASONE
     Indication: FOETAL EXPOSURE DURING PREGNANCY
     Route: 064

REACTIONS (11)
  - Maternal exposure during pregnancy [Recovered/Resolved]
  - Apgar score low [Recovered/Resolved]
  - Pulmonary hypoplasia [Recovered/Resolved]
  - Patent ductus arteriosus [Recovered/Resolved]
  - Systolic dysfunction [Recovered/Resolved]
  - Neonatal hypoxia [Recovered/Resolved]
  - Blood creatinine increased [Recovered/Resolved]
  - Neonatal pneumothorax [Recovered/Resolved]
  - Pulmonary hypertensive crisis [Recovered/Resolved]
  - Neonatal hypotension [Recovered/Resolved]
  - Dyspnoea [Recovered/Resolved]
